FAERS Safety Report 19443973 (Version 1)
Quarter: 2021Q2

REPORT INFORMATION
  Report Type: Report from Study
  Country: None (occurrence: CO)
  Receive Date: 20210621
  Receipt Date: 20210621
  Transmission Date: 20210717
  Serious: Yes (Hospitalization)
  Sender: FDA-Public Use
  Company Number: CO-ABBVIE-21K-036-3959006-00

PATIENT
  Age: 31 Year
  Sex: Female
  Weight: 61 kg

DRUGS (1)
  1. ZEMPLAR [Suspect]
     Active Substance: PARICALCITOL
     Indication: CHRONIC KIDNEY DISEASE
     Route: 042
     Dates: start: 20201215, end: 20210608

REACTIONS (1)
  - Device related sepsis [Recovered/Resolved]

NARRATIVE: CASE EVENT DATE: 20210615
